FAERS Safety Report 16136354 (Version 1)
Quarter: 2019Q1

REPORT INFORMATION
  Report Type: Spontaneous
  Country: US (occurrence: US)
  Receive Date: 20190329
  Receipt Date: 20190329
  Transmission Date: 20190418
  Serious: No
  Sender: FDA-Public Use
  Company Number: US-009507513-1903USA008136

PATIENT
  Age: 59 Year
  Sex: Female

DRUGS (6)
  1. PROVENTIL [Suspect]
     Active Substance: ALBUTEROL
     Dosage: 2 DOSAGE FORM, EVERY 4 TO 6 HOURS, ORAL INHALATION/ USE SEVERAL TIMES DAILY
     Dates: start: 201901
  2. ADVAIR HFA [Concomitant]
     Active Substance: FLUTICASONE PROPIONATE\SALMETEROL XINAFOATE
     Dosage: UNK
  3. IPRATROPIUM BROMIDE. [Concomitant]
     Active Substance: IPRATROPIUM BROMIDE
     Dosage: FORMULATION: NEBULIZER
  4. PROVENTIL [Suspect]
     Active Substance: ALBUTEROL
     Indication: CHRONIC OBSTRUCTIVE PULMONARY DISEASE
     Dosage: 2 DOSAGE FORM, EVERY 4 TO 6 HOURS, ORAL INHALATION/ USE SEVERAL TIMES DAILY
     Dates: start: 201901, end: 201901
  5. PROVENTIL [Suspect]
     Active Substance: ALBUTEROL
     Dosage: 2 DOSAGE FORM, EVERY 4 TO 6 HOURS, ORAL INHALATION/ USE SEVERAL TIMES DAILY
     Dates: start: 201901, end: 201901
  6. ALBUTEROL. [Concomitant]
     Active Substance: ALBUTEROL
     Dosage: FOR SEVERAL YEARS

REACTIONS (4)
  - Product quality issue [Unknown]
  - Oropharyngeal pain [Recovering/Resolving]
  - Inappropriate schedule of product administration [Unknown]
  - Dyspnoea [Recovering/Resolving]

NARRATIVE: CASE EVENT DATE: 201901
